FAERS Safety Report 25688418 (Version 2)
Quarter: 2025Q3

REPORT INFORMATION
  Report Type: Report from Study
  Country: CN (occurrence: CN)
  Receive Date: 20250818
  Receipt Date: 20250930
  Transmission Date: 20251021
  Serious: Yes (Other)
  Sender: TAKEDA
  Company Number: CN-TAKEDA-2025TUS071839

PATIENT
  Age: 76 Year
  Sex: Male

DRUGS (10)
  1. IXAZOMIB [Suspect]
     Active Substance: IXAZOMIB
     Indication: Plasma cell myeloma
  2. DEXAMETHASONE [Suspect]
     Active Substance: DEXAMETHASONE
     Indication: Plasma cell myeloma
  3. PANTOPRAZOLE SODIUM [Concomitant]
     Active Substance: PANTOPRAZOLE SODIUM
     Indication: Prophylaxis
     Dosage: 40 MILLIGRAM, QD
     Dates: start: 20240407
  4. CALCIUM CARBONATE\CHOLECALCIFEROL [Concomitant]
     Active Substance: CALCIUM CARBONATE\CHOLECALCIFEROL
     Indication: Prophylaxis
     Dosage: UNK UNK, QD
     Dates: start: 20240407
  5. METHYLCOBALAMIN [Concomitant]
     Active Substance: METHYLCOBALAMIN
     Indication: Prophylaxis
     Dosage: 0.5 MILLIGRAM, TID
     Dates: start: 20240407
  6. DESLORATADINE [Concomitant]
     Active Substance: DESLORATADINE
     Indication: Eczema
     Dosage: 8.8 MILLIGRAM, QD
     Dates: start: 20240331
  7. EBASTINE [Concomitant]
     Active Substance: EBASTINE
     Indication: Eczema
     Dosage: 10 MILLIGRAM, QD
     Dates: start: 20240409
  8. BICYCLOL [Concomitant]
     Active Substance: BICYCLOL
     Indication: Prophylaxis
     Dosage: 25 MILLIGRAM, TID
     Dates: start: 20240619
  9. Eucalyptol, limonene and pinene [Concomitant]
     Indication: Pneumonia
     Dosage: UNK UNK, TID
     Dates: start: 20240619
  10. Lumbrokinase [Concomitant]
     Indication: Thrombosis prophylaxis
     Dosage: 0.3 GRAM, TID
     Dates: start: 20240619

REACTIONS (4)
  - Squamous cell carcinoma [Unknown]
  - Gastric cancer [Not Recovered/Not Resolved]
  - Dizziness [Recovered/Resolved]
  - White blood cell count decreased [Recovered/Resolved]

NARRATIVE: CASE EVENT DATE: 20240911
